FAERS Safety Report 4462001-7 (Version None)
Quarter: 2004Q3

REPORT INFORMATION
  Report Type: 
  Country: None (occurrence: None)
  Receive Date: 20040924
  Receipt Date: 20040919
  Transmission Date: 20050211
  Serious: Yes (Hospitalization)
  Sender: FDA-Public Use
  Company Number: US013801

PATIENT
  Sex: Female

DRUGS (4)
  1. PROVIGIL [Suspect]
     Indication: SEDATION
     Dosage: 100 MG QD ORAL
     Route: 048
     Dates: start: 20040901
  2. KLONOPIN [Concomitant]
  3. PERCOCET [Concomitant]
  4. LEXAPRO [Concomitant]

REACTIONS (4)
  - BLOOD TEST ABNORMAL [None]
  - DRUG SCREEN POSITIVE [None]
  - HEPATIC FAILURE [None]
  - RENAL FAILURE [None]
